FAERS Safety Report 17292613 (Version 1)
Quarter: 2020Q1

REPORT INFORMATION
  Report Type: Report from Study
  Country: US (occurrence: US)
  Receive Date: 20200121
  Receipt Date: 20200121
  Transmission Date: 20200409
  Serious: Yes (Hospitalization)
  Sender: FDA-Public Use
  Company Number: US-BAYER-2020-000014

PATIENT
  Age: 57 Year
  Sex: Male
  Weight: 82.54 kg

DRUGS (2)
  1. STIVARGA [Suspect]
     Active Substance: REGORAFENIB
     Indication: COLON CANCER
     Dosage: DAILY DOSE 40 MG
  2. STIVARGA [Suspect]
     Active Substance: REGORAFENIB
     Indication: COLON CANCER
     Dosage: DAILY DOSE 80 MG FOR 21 DAYS
     Dates: start: 20180508

REACTIONS (3)
  - Fatigue [None]
  - Pyrexia [None]
  - Off label use [None]

NARRATIVE: CASE EVENT DATE: 20180508
